FAERS Safety Report 9840140 (Version 1)
Quarter: 2013Q4

REPORT INFORMATION
  Report Type: Spontaneous
  Country: US (occurrence: None)
  Receive Date: 20131211
  Receipt Date: 20131211
  Transmission Date: 20140711
  Serious: Yes (Other)
  Sender: FDA-Public Use
  Company Number: ALL1-2012-05413

PATIENT
  Sex: Female
  Weight: 54.4 kg

DRUGS (2)
  1. FIRAZYR [Suspect]
     Indication: HEREDITARY ANGIOEDEMA
     Route: 058
     Dates: start: 2011, end: 2011
  2. CINRYZE (COMPLEMENT C1 ESTERASE INHIBITOR) [Concomitant]

REACTIONS (1)
  - Injection site pain [None]
